FAERS Safety Report 20177466 (Version 1)
Quarter: 2021Q4

REPORT INFORMATION
  Report Type: Spontaneous
  Country: US (occurrence: None)
  Receive Date: 20211212
  Receipt Date: 20211212
  Transmission Date: 20220303
  Serious: Yes (Other)
  Sender: FDA-Public Use
  Company Number: None

PATIENT
  Age: 74 Year
  Sex: Male
  Weight: 117 kg

DRUGS (9)
  1. TADALAFIL [Suspect]
     Active Substance: TADALAFIL
     Indication: Pulmonary hypertension
     Dosage: OTHER QUANTITY : 1 TABLET(S);?FREQUENCY : TWICE A DAY;?
     Route: 048
     Dates: start: 20210914, end: 20211209
  2. LOSARTAN [Concomitant]
     Active Substance: LOSARTAN
  3. CLONIDINE [Concomitant]
     Active Substance: CLONIDINE
  4. MELOXICAM [Concomitant]
     Active Substance: MELOXICAM
  5. CPAP MACHINE [Concomitant]
  6. ASPIRIN [Concomitant]
     Active Substance: ASPIRIN
  7. COENZYME Q10 [Concomitant]
     Active Substance: DIETARY SUPPLEMENT\UBIDECARENONE
  8. UBIQUINOL [Concomitant]
     Active Substance: UBIQUINOL
  9. GLUCOSAMINE/CONDROITIN [Concomitant]

REACTIONS (3)
  - Product substitution issue [None]
  - Drug ineffective [None]
  - Blood pressure increased [None]

NARRATIVE: CASE EVENT DATE: 20210914
